FAERS Safety Report 8481646-0 (Version None)
Quarter: 2012Q3

REPORT INFORMATION
  Report Type: 
  Country: None (occurrence: None)
  Receive Date: 20120702
  Receipt Date: 20120626
  Transmission Date: 20120928
  Serious: No
  Sender: FDA-Public Use
  Company Number: US-BAYER-2012-064351

PATIENT

DRUGS (2)
  1. ALEVE (CAPLET) [Suspect]
     Indication: OROPHARYNGEAL PAIN
  2. IBUPROFEN [Concomitant]
     Indication: OROPHARYNGEAL PAIN

REACTIONS (1)
  - OROPHARYNGEAL PAIN [None]
